FAERS Safety Report 8376714-8 (Version None)
Quarter: 2012Q2

REPORT INFORMATION
  Report Type: 
  Country: None (occurrence: None)
  Receive Date: 20120518
  Receipt Date: 20120509
  Transmission Date: 20120825
  Serious: Yes (Hospitalization)
  Sender: FDA-Public Use
  Company Number: MPS1-1000693

PATIENT
  Age: 8 Year
  Sex: Female

DRUGS (1)
  1. ALDURAZYME [Suspect]
     Indication: MUCOPOLYSACCHARIDOSIS I
     Dosage: 12 VIALS, Q4H, INTRAVENOUS
     Route: 042
     Dates: start: 20061201

REACTIONS (1)
  - RESPIRATORY DISORDER [None]
